FAERS Safety Report 4358472-7 (Version None)
Quarter: 2004Q2

REPORT INFORMATION
  Report Type: 
  Country: None (occurrence: None)
  Receive Date: 20040514
  Receipt Date: 20040308
  Transmission Date: 20050107
  Serious: Yes (Hospitalization)
  Sender: FDA-Public Use
  Company Number: PHRM2004FR01119

PATIENT
  Age: 64 Year
  Sex: Male

DRUGS (3)
  1. PARLODEL [Suspect]
     Indication: PARKINSON'S DISEASE
     Dosage: 30 MG/DAY
     Route: 048
     Dates: start: 19940101, end: 20040301
  2. SINEMET [Suspect]
     Indication: PARKINSON'S DISEASE
     Dosage: 1250 MG/DAY
     Route: 048
     Dates: start: 19940101
  3. TRIVASTAL [Concomitant]
     Route: 048

REACTIONS (3)
  - INTERSTITIAL LUNG DISEASE [None]
  - PLEURAL EFFUSION [None]
  - PLEURAL FIBROSIS [None]
